FAERS Safety Report 7347493-8 (Version None)
Quarter: 2011Q1

REPORT INFORMATION
  Report Type: 
  Country: None (occurrence: None)
  Receive Date: 20110311
  Receipt Date: 20100128
  Transmission Date: 20110831
  Serious: No
  Sender: FDA-Public Use
  Company Number: US-BAYER-201012731NA

PATIENT
  Sex: Female
  Weight: 65.909 kg

DRUGS (1)
  1. MIRENA [Suspect]
     Dosage: 20 ?G/D, CONT
     Route: 015
     Dates: start: 20091029

REACTIONS (3)
  - DEVICE DISLOCATION [None]
  - DEVICE DIFFICULT TO USE [None]
  - MEDICAL DEVICE COMPLICATION [None]
